FAERS Safety Report 25792706 (Version 2)
Quarter: 2025Q3

REPORT INFORMATION
  Report Type: Spontaneous
  Country: EU (occurrence: EU)
  Receive Date: 20250911
  Receipt Date: 20250925
  Transmission Date: 20251021
  Serious: Yes (Other)
  Sender: NOVARTIS
  Company Number: EU-002147023-NVSC2025AT138539

PATIENT
  Age: 24 Year
  Sex: Male

DRUGS (1)
  1. KESIMPTA [Suspect]
     Active Substance: OFATUMUMAB
     Indication: Multiple sclerosis
     Dosage: 20 MG, QMO
     Route: 058
     Dates: start: 202212

REACTIONS (3)
  - Multiple sclerosis relapse [Unknown]
  - Skin lesion [Unknown]
  - Sensory disturbance [Recovering/Resolving]

NARRATIVE: CASE EVENT DATE: 20230201
